FAERS Safety Report 9117872 (Version 1)
Quarter: 2013Q1

REPORT INFORMATION
  Report Type: Spontaneous
  Country: US (occurrence: US)
  Receive Date: 20130225
  Receipt Date: 20130225
  Transmission Date: 20140127
  Serious: No
  Sender: FDA-Public Use
  Company Number: US-009507513-1302USA010857

PATIENT
  Age: 18 Year
  Sex: Female

DRUGS (1)
  1. IMPLANON [Suspect]
     Indication: CONTRACEPTION
     Dosage: FREQUENCY : EVERY 3 YEARS
     Route: 059
     Dates: start: 20120928

REACTIONS (5)
  - Acne [Unknown]
  - Metrorrhagia [Unknown]
  - Nausea [Unknown]
  - Headache [Unknown]
  - Back pain [Unknown]
